FAERS Safety Report 7885218-8 (Version None)
Quarter: 2011Q4

REPORT INFORMATION
  Report Type: 
  Country: None (occurrence: None)
  Receive Date: 20111102
  Receipt Date: 20111025
  Transmission Date: 20120403
  Serious: Yes (Other)
  Sender: FDA-Public Use
  Company Number: PHHY2011GB31510

PATIENT
  Age: 62 Year
  Sex: Male

DRUGS (6)
  1. DEXAMETHASONE SODIUM PHOSPHATE [Suspect]
     Dosage: UNK
  2. CYCLOPENTOLATE HCL [Suspect]
     Dosage: UNK
  3. TOBRAMYCIN [Suspect]
     Dosage: UNK
  4. HOMATROPINE [Concomitant]
     Dosage: 5 %, QID
  5. GATIFLOXACIN [Concomitant]
     Dosage: UNK
  6. TAMSULOSIN HCL [Suspect]
     Dosage: UNK

REACTIONS (6)
  - VISUAL ACUITY REDUCED [None]
  - ANGLE CLOSURE GLAUCOMA [None]
  - INTRAOCULAR PRESSURE INCREASED [None]
  - EYE PAIN [None]
  - VOMITING [None]
  - PUPIL FIXED [None]
